FAERS Safety Report 4279288-6 (Version None)
Quarter: 2004Q1

REPORT INFORMATION
  Report Type: 
  Country: None (occurrence: None)
  Receive Date: 20040122
  Receipt Date: 20040112
  Transmission Date: 20041129
  Serious: Yes (Hospitalization)
  Sender: FDA-Public Use
  Company Number: 2004002016

PATIENT
  Age: 53 Year
  Sex: Male

DRUGS (2)
  1. LIPITOR [Suspect]
     Indication: HYPERCHOLESTEROLAEMIA
     Dosage: 40 MG (DAILY),ORAL
     Route: 048
     Dates: start: 19981201
  2. HEPATITIS A VACCINE (HEPATITIS A VACCINE) [Concomitant]

REACTIONS (1)
  - GUILLAIN-BARRE SYNDROME [None]
